FAERS Safety Report 9475283 (Version 2)
Quarter: 2013Q4

REPORT INFORMATION
  Report Type: Spontaneous
  Country: DE (occurrence: DE)
  Receive Date: 20130826
  Receipt Date: 20131120
  Transmission Date: 20140711
  Serious: Yes (Hospitalization)
  Sender: FDA-Public Use
  Company Number: DE-ROCHE-1265734

PATIENT
  Sex: Female

DRUGS (2)
  1. LUCENTIS [Suspect]
     Indication: AGE-RELATED MACULAR DEGENERATION
     Route: 065
     Dates: start: 20121219
  2. DICLOFENAC [Concomitant]

REACTIONS (3)
  - Pulmonary embolism [Recovering/Resolving]
  - Retinal oedema [Unknown]
  - Inappropriate schedule of drug administration [Unknown]
